FAERS Safety Report 6019462-1 (Version None)
Quarter: 2008Q4

REPORT INFORMATION
  Report Type: 
  Country: None (occurrence: None)
  Receive Date: 20081224
  Receipt Date: 20081204
  Transmission Date: 20090506
  Serious: Yes (Hospitalization)
  Sender: FDA-Public Use
  Company Number: DK-ASTRAZENECA-2008SE05828

PATIENT
  Age: 27599 Day
  Sex: Male
  Weight: 89 kg

DRUGS (5)
  1. TENORETIC 100 [Suspect]
     Indication: THROMBOSIS
     Route: 048
     Dates: start: 20010101, end: 20081021
  2. ACETYLSALICYLIC ACID [Concomitant]
  3. LANSOPRAZOL [Concomitant]
  4. SIMVASTATIN [Concomitant]
  5. ODRIK [Concomitant]

REACTIONS (3)
  - BRADYCARDIA [None]
  - DIZZINESS [None]
  - LOSS OF CONSCIOUSNESS [None]
